FAERS Safety Report 19899911 (Version 1)
Quarter: 2021Q3

REPORT INFORMATION
  Report Type: Spontaneous
  Country: KR (occurrence: KR)
  Receive Date: 20210930
  Receipt Date: 20210930
  Transmission Date: 20211014
  Serious: Yes (Other)
  Sender: FDA-Public Use
  Company Number: KR-GLAXOSMITHKLINE-KR2021APC204074

PATIENT
  Age: 42 Year
  Sex: Male

DRUGS (1)
  1. KIVEXA [Suspect]
     Active Substance: ABACAVIR SULFATE\LAMIVUDINE
     Indication: HIV INFECTION
     Dosage: 1 MG
     Route: 048
     Dates: start: 20120323

REACTIONS (1)
  - Neurosyphilis [Not Recovered/Not Resolved]

NARRATIVE: CASE EVENT DATE: 20160303
